FAERS Safety Report 26092634 (Version 1)
Quarter: 2025Q4

REPORT INFORMATION
  Report Type: Spontaneous
  Country: CN (occurrence: CN)
  Receive Date: 20251126
  Receipt Date: 20251126
  Transmission Date: 20260118
  Serious: No
  Sender: ALKEM
  Company Number: None

PATIENT
  Age: 48 Year
  Sex: Female

DRUGS (12)
  1. MYCOPHENOLATE MOFETIL [Suspect]
     Active Substance: MYCOPHENOLATE MOFETIL
     Indication: Pemphigus
     Dosage: 1 GRAM, BID
     Route: 065
     Dates: start: 20240202
  2. MYCOPHENOLATE MOFETIL [Suspect]
     Active Substance: MYCOPHENOLATE MOFETIL
     Dosage: 0.5 GRAM, BID
     Route: 065
     Dates: start: 202402
  3. BETAMETHASONE DIPROPIONATE\BETAMETHASONE SODIUM PHOSPHATE [Concomitant]
     Active Substance: BETAMETHASONE DIPROPIONATE\BETAMETHASONE SODIUM PHOSPHATE
     Indication: Pemphigus
     Dosage: 1 MILLIGRAM, ONCE
     Route: 065
     Dates: start: 20240202, end: 20240202
  4. FUSIDIC ACID [Concomitant]
     Active Substance: FUSIDIC ACID
     Indication: Pemphigus
     Dosage: UNK
     Route: 061
     Dates: start: 2024
  5. HALOMETASONE [Concomitant]
     Active Substance: HALOMETASONE
     Indication: Pemphigus
     Dosage: UNK
     Route: 061
     Dates: start: 2024
  6. PREDNISONE [Concomitant]
     Active Substance: PREDNISONE
     Indication: Pemphigus
     Dosage: 30 MILLIGRAM, QD
     Route: 048
     Dates: start: 20240111, end: 20241119
  7. PREDNISONE [Concomitant]
     Active Substance: PREDNISONE
     Dosage: 25 MILLIGRAM, QD
     Route: 065
     Dates: start: 20240202
  8. PREDNISONE [Concomitant]
     Active Substance: PREDNISONE
     Dosage: 17.5 MILLIGRAM (REDUCED DOSE)
     Route: 065
     Dates: start: 20240229
  9. PREDNISONE [Concomitant]
     Active Substance: PREDNISONE
     Dosage: 20 MILLIGRAM, QD (INCREASED DOSE)
     Route: 065
     Dates: start: 20240307
  10. PREDNISONE [Concomitant]
     Active Substance: PREDNISONE
     Dosage: 10 MILLIGRAM, QD (TAPERED DOSE)
     Route: 065
     Dates: start: 20240418
  11. TELITACICEPT [Concomitant]
     Active Substance: TELITACICEPT
     Indication: Pemphigus
     Dosage: 160 MILLIGRAM, ONCE WEEKLY
     Route: 058
     Dates: start: 20240229
  12. TELITACICEPT [Concomitant]
     Active Substance: TELITACICEPT
     Dosage: 13 DOSAGE FORM
     Route: 065
     Dates: start: 20240418

REACTIONS (1)
  - Tremor [Recovered/Resolved]

NARRATIVE: CASE EVENT DATE: 20240101
